FAERS Safety Report 6424605-1 (Version None)
Quarter: 2009Q4

REPORT INFORMATION
  Report Type: 
  Country: None (occurrence: None)
  Receive Date: 20091103
  Receipt Date: 20091022
  Transmission Date: 20100525
  Serious: Yes (Other)
  Sender: FDA-Public Use
  Company Number: PHEH2009US10907

PATIENT
  Sex: Male

DRUGS (1)
  1. EXJADE [Suspect]
     Dosage: 250 UNK, DAILY
     Route: 048
     Dates: start: 20080331, end: 20090903

REACTIONS (1)
  - NERVOUS SYSTEM DISORDER [None]
